FAERS Safety Report 7449953-8 (Version None)
Quarter: 2011Q2

REPORT INFORMATION
  Report Type: 
  Country: None (occurrence: None)
  Receive Date: 20110428
  Receipt Date: 20110428
  Transmission Date: 20111010
  Serious: No
  Sender: FDA-Public Use
  Company Number: None

PATIENT
  Sex: Female
  Weight: 56 kg

DRUGS (1)
  1. ZOMETA [Suspect]
     Dosage: 3.3 MG

REACTIONS (11)
  - WEIGHT DECREASED [None]
  - METASTASES TO SOFT TISSUE [None]
  - METASTASES TO ADRENALS [None]
  - VOMITING [None]
  - DYSPHAGIA [None]
  - METASTASES TO LIVER [None]
  - HEPATIC CYST [None]
  - DIARRHOEA [None]
  - METASTASES TO THYROID [None]
  - BONE LESION [None]
  - NAUSEA [None]
